FAERS Safety Report 12852066 (Version 1)
Quarter: 2016Q4

REPORT INFORMATION
  Report Type: Spontaneous
  Country: US (occurrence: US)
  Receive Date: 20161014
  Receipt Date: 20161014
  Transmission Date: 20170207
  Serious: Yes (Disabling, Other)
  Sender: FDA-Public Use
  Company Number: None

PATIENT
  Age: 51 Year
  Sex: Female
  Weight: 63 kg

DRUGS (6)
  1. BIOTIN [Concomitant]
     Active Substance: BIOTIN
  2. COLLAGEN TABLETS [Concomitant]
  3. FISH OIL [Concomitant]
     Active Substance: FISH OIL
  4. UBIQUINOL [Concomitant]
     Active Substance: UBIQUINOL
  5. CIPRO [Suspect]
     Active Substance: CIPROFLOXACIN HYDROCHLORIDE
     Indication: URINARY TRACT INFECTION
     Route: 048
     Dates: start: 20160315, end: 20160330
  6. TURMERIC [Concomitant]
     Active Substance: TURMERIC

REACTIONS (7)
  - Neuropathy peripheral [None]
  - Pain [None]
  - Burning sensation [None]
  - Hypoaesthesia [None]
  - Paraesthesia [None]
  - Arthralgia [None]
  - Joint stiffness [None]

NARRATIVE: CASE EVENT DATE: 20160330
